FAERS Safety Report 20963739 (Version 1)
Quarter: 2022Q2

REPORT INFORMATION
  Report Type: Spontaneous
  Country: IT (occurrence: IT)
  Receive Date: 20220615
  Receipt Date: 20220615
  Transmission Date: 20220721
  Serious: Yes (Death, Other)
  Sender: FDA-Public Use
  Company Number: IT-CELLTRION HEALTHCARE HUNGARY KFT-2022IT007998

PATIENT

DRUGS (16)
  1. DOXORUBICIN [Suspect]
     Active Substance: DOXORUBICIN
     Indication: High-grade B-cell lymphoma
     Dosage: 50 MILLIGRAM/SQ. METER (DAY 29 INDUCTION DOSE)
     Route: 040
  2. METHOTREXATE [Suspect]
     Active Substance: METHOTREXATE
     Indication: Product used for unknown indication
     Dosage: UNK, 3 G/M2 OVER 6 HOURS WITH LEUCOVORIN RESCUE THERAPY (DAY 7 INDUCTION DOSE)
     Route: 042
  3. METHOTREXATE [Suspect]
     Active Substance: METHOTREXATE
     Dosage: UNK, 3 G/M2 OVER 6 HOURS WITH LEUCOVORIN RESCUE THERAPY (DAY 21 INDUCTION DOSE)
     Route: 042
  4. METHOTREXATE [Suspect]
     Active Substance: METHOTREXATE
     Indication: Product used for unknown indication
     Dosage: 12 MILLIGRAM AND CYTARABINE 50 MG AND STEROIDS (DAY 33 INDUCTION DOSE)
     Route: 037
  5. METHOTREXATE [Suspect]
     Active Substance: METHOTREXATE
     Dosage: 12 MILLIGRAM AND CYTARABINE 50 MG AND STEROIDS (DAY 5 INDUCTION DOSE)
     Route: 037
  6. METHOTREXATE [Suspect]
     Active Substance: METHOTREXATE
     Dosage: 12 MILLIGRAM AND CYTARABINE 50 MG AND STEROIDS (DAY 19 INDUCTION DOSE)
     Route: 037
  7. CYTARABINE [Suspect]
     Active Substance: CYTARABINE
     Indication: High-grade B-cell lymphoma
     Dosage: UNK, CYTARABINE 2 G/M2 IN A 3-HOUR INFUSION, TWICE A DAY (EVERY 12 HOURS)
  8. RITUXIMAB [Suspect]
     Active Substance: RITUXIMAB
     Indication: High-grade B-cell lymphoma
     Dosage: 375 MILLIGRAM/SQ. METER, (DAY 2, 14, 29, AND 36 INDUCTION DOSE)
  9. RITUXIMAB [Suspect]
     Active Substance: RITUXIMAB
     Dosage: 375 MILLIGRAM/SQ. METER , (DAY 52 AND 60 CONSOLIDATION DOSE)
  10. VINCRISTINE [Suspect]
     Active Substance: VINCRISTINE
     Indication: Product used for unknown indication
     Dosage: 2 MILLIGRAM, (DAY 36 INDUCTION DOSE)
     Route: 040
  11. VINCRISTINE [Suspect]
     Active Substance: VINCRISTINE
     Dosage: 2 MILLIGRAM, (DAY 0 INDUCTION DOSE)
     Route: 040
  12. ETOPOSIDE [Suspect]
     Active Substance: ETOPOSIDE
     Indication: High-grade B-cell lymphoma
     Dosage: 250 MILLIGRAM/SQ. METER, BID (DAY 15 INDUCTION DOSE)
  13. CYTARABINE\HYDROCORTISONE\METHOTREXATE [Suspect]
     Active Substance: CYTARABINE\HYDROCORTISONE\METHOTREXATE
     Indication: Chemotherapy
     Dosage: UNK, DELIVERED EVERY 14 DAYS BY LUMBAR PUNCTURE
     Route: 037
  14. CYCLOPHOSPHAMIDE [Suspect]
     Active Substance: CYCLOPHOSPHAMIDE
     Indication: High-grade B-cell lymphoma
     Dosage: 500 MILLIGRAM/SQ. METER, OVER 1 HR INFUSION (DAY 0 INDUCTION DOSE)
  15. CYCLOPHOSPHAMIDE [Suspect]
     Active Substance: CYCLOPHOSPHAMIDE
     Dosage: 500 MILLIGRAM/SQ. METER, OVER 1 HOUR INFUSION (DAY 1 INDUCTION DOSE)
  16. METHYLPREDNISOLONE [Concomitant]
     Active Substance: METHYLPREDNISOLONE
     Dosage: UNK, 0.5-1 MG/KG/D (DAYS -2, -1, 0, AND 1 INDUCTION DOSE)
     Route: 042

REACTIONS (3)
  - Acute myeloid leukaemia [Fatal]
  - Myelodysplastic syndrome [Fatal]
  - Off label use [Unknown]
